FAERS Safety Report 4516367-X (Version None)
Quarter: 2004Q4

REPORT INFORMATION
  Report Type: 
  Country: None (occurrence: None)
  Receive Date: 20041202
  Receipt Date: 20040614
  Transmission Date: 20050328
  Serious: No
  Sender: FDA-Public Use
  Company Number: US-GLAXOSMITHKLINE-A0514502A

PATIENT
  Age: 3 Year
  Sex: Female

DRUGS (3)
  1. AUGMENTIN ES-600 [Suspect]
     Dosage: 4ML TWICE PER DAY
     Route: 048
     Dates: start: 20040611
  2. ZANTAC [Concomitant]
  3. PREVACID [Concomitant]

REACTIONS (1)
  - DIARRHOEA [None]
